FAERS Safety Report 5302217-0 (Version None)
Quarter: 2007Q2

REPORT INFORMATION
  Report Type: 
  Country: None (occurrence: None)
  Receive Date: 20070412
  Receipt Date: 20070327
  Transmission Date: 20071010
  Serious: Yes (Death)
  Sender: FDA-Public Use
  Company Number: 2006JP005489

PATIENT
  Age: 49 Year
  Sex: Female
  Weight: 49.6 kg

DRUGS (14)
  1. FUNGUARD (MICAFUNGIN INJECTION) [Suspect]
     Indication: FUNGAL INFECTION
     Dosage: SEE IMAGE
     Route: 041
     Dates: start: 20060424, end: 20060427
  2. FUNGUARD (MICAFUNGIN INJECTION) [Suspect]
     Indication: FUNGAL INFECTION
     Dosage: SEE IMAGE
     Route: 041
     Dates: start: 20060428, end: 20060526
  3. DIFLUCAN [Concomitant]
  4. MEROPEN (MEROPENEM) [Concomitant]
  5. VANCOMYCIN HYDROCHLORIDE [Concomitant]
  6. OMEGACIN (BIAPENEM) [Concomitant]
  7. HABEKACIN (ARBEKACIN) [Concomitant]
  8. TARGOCID [Concomitant]
  9. FINIBAX [Concomitant]
  10. ZYVOX [Concomitant]
  11. NEUPOGEN [Concomitant]
  12. FLUDARA [Concomitant]
  13. VEPESID [Concomitant]
  14. SANDIMMUNE [Concomitant]

REACTIONS (4)
  - CONDITION AGGRAVATED [None]
  - INFECTION [None]
  - LEUKOPENIA [None]
  - TRANSPLANT REJECTION [None]
